FAERS Safety Report 5460867-5 (Version None)
Quarter: 2007Q3

REPORT INFORMATION
  Report Type: 
  Country: None (occurrence: None)
  Receive Date: 20070918
  Receipt Date: 20070829
  Transmission Date: 20080115
  Serious: Yes (Life-Threatening, Hospitalization)
  Sender: FDA-Public Use
  Company Number: 6036499

PATIENT
  Age: 59 Year
  Sex: Male

DRUGS (3)
  1. DOXAZOSIN MESYLATE [Suspect]
     Indication: HYPERTENSION
     Dosage: 8 MG (4 MG, 2 IN 1 D) ORAL
     Route: 048
     Dates: start: 20070330, end: 20070705
  2. LARIAM [Suspect]
     Indication: DRUG USE FOR UNKNOWN INDICATION
     Dosage: 250 MG (250 MG, 1 IN 1 WK)
     Dates: start: 20070520, end: 20070624
  3. LOSARTAN POTASSIUM AND HYDROCHLOROTHIAZIDE [Suspect]
     Indication: HYPERTENSION
     Dosage: 1 DOSAGE FORMS (1 DOSAGE FORMS, 1 IN 1 D)
     Dates: start: 20061220, end: 20070705

REACTIONS (3)
  - BLOOD PRESSURE DECREASED [None]
  - BRADYCARDIA [None]
  - SYNCOPE VASOVAGAL [None]
